FAERS Safety Report 9939655 (Version 1)
Quarter: 2014Q1

REPORT INFORMATION
  Report Type: Spontaneous
  Country: US (occurrence: US)
  Receive Date: 20140303
  Receipt Date: 20140303
  Transmission Date: 20141002
  Serious: No
  Sender: FDA-Public Use
  Company Number: US-ABBVIE-13P-163-1034407-00

PATIENT
  Age: 50 Year
  Sex: Male

DRUGS (10)
  1. HUMIRA [Suspect]
     Indication: PSORIASIS
     Dates: start: 20130101
  2. HUMIRA [Suspect]
     Indication: PSORIATIC ARTHROPATHY
  3. HUMIRA [Suspect]
     Indication: RHEUMATOID ARTHRITIS
  4. TYLENOL WITH CODEINE [Concomitant]
     Indication: PAIN
  5. PREDNISONE [Concomitant]
     Indication: PSORIASIS
  6. PREDNISONE [Concomitant]
     Indication: PSORIATIC ARTHROPATHY
  7. PREDNISONE [Concomitant]
     Indication: RHEUMATOID ARTHRITIS
  8. BETAMETHASONE [Concomitant]
     Indication: PSORIASIS
  9. FOLIC ACID [Concomitant]
     Indication: PRODUCT USED FOR UNKNOWN INDICATION
  10. FLEXOFENADINE [Concomitant]
     Indication: SINUS DISORDER

REACTIONS (4)
  - Injection site discolouration [Not Recovered/Not Resolved]
  - Muscle spasms [Not Recovered/Not Resolved]
  - Device malfunction [Unknown]
  - Incorrect dose administered [Unknown]
